FAERS Safety Report 7674170-6 (Version None)
Quarter: 2011Q3

REPORT INFORMATION
  Report Type: 
  Country: None (occurrence: None)
  Receive Date: 20110810
  Receipt Date: 20110803
  Transmission Date: 20111222
  Serious: Yes (Death, Life-Threatening)
  Sender: FDA-Public Use
  Company Number: DE-JNJFOC-20110208243

PATIENT
  Age: 83 Year
  Sex: Male

DRUGS (12)
  1. FENTANYL [Suspect]
     Route: 062
     Dates: start: 20100214
  2. FENTANYL [Suspect]
     Indication: PRODUCT USED FOR UNKNOWN INDICATION
     Route: 062
     Dates: end: 20100211
  3. HALDOL [Suspect]
     Indication: PRODUCT USED FOR UNKNOWN INDICATION
     Route: 042
     Dates: start: 20100215
  4. JONOSTERIL S [Concomitant]
     Route: 042
     Dates: start: 20100213
  5. DOMINAL [Suspect]
     Indication: PRODUCT USED FOR UNKNOWN INDICATION
     Route: 048
     Dates: start: 20100210, end: 20100213
  6. ENOXAPARIN SODIUM [Concomitant]
     Route: 058
     Dates: start: 20100210
  7. TORSEMIDE [Concomitant]
     Indication: HYPERTENSION
     Route: 065
  8. LOSARTAN POTASSIUM [Concomitant]
     Indication: HYPERTENSION
     Route: 065
  9. SEROQUEL [Suspect]
     Indication: PRODUCT USED FOR UNKNOWN INDICATION
     Route: 048
     Dates: start: 20100210, end: 20100212
  10. FENTANYL [Suspect]
     Route: 062
     Dates: start: 20100212, end: 20100213
  11. LYRICA [Suspect]
     Indication: PRODUCT USED FOR UNKNOWN INDICATION
     Route: 048
     Dates: start: 20100211, end: 20100213
  12. FUROSEMIDE [Concomitant]
     Route: 048
     Dates: start: 20100213

REACTIONS (8)
  - LUNG DISORDER [None]
  - PAIN IN EXTREMITY [None]
  - PYREXIA [None]
  - DEATH [None]
  - CYANOSIS [None]
  - BLOOD PRESSURE DECREASED [None]
  - RHONCHI [None]
  - GENERAL PHYSICAL HEALTH DETERIORATION [None]
